FAERS Safety Report 24355716 (Version 2)
Quarter: 2024Q3

REPORT INFORMATION
  Report Type: Spontaneous
  Country: US (occurrence: US)
  Receive Date: 20240924
  Receipt Date: 20240930
  Transmission Date: 20241017
  Serious: No
  Sender: GLAXOSMITHKLINE
  Company Number: US-GSK-US2024AMR116857

PATIENT
  Sex: Female

DRUGS (1)
  1. NUCALA [Suspect]
     Active Substance: MEPOLIZUMAB
     Indication: Product used for unknown indication
     Dosage: UNK

REACTIONS (5)
  - Headache [Unknown]
  - Ocular hyperaemia [Recovered/Resolved]
  - Swelling face [Unknown]
  - Urticaria [Recovered/Resolved]
  - Pain in extremity [Recovered/Resolved]
